FAERS Safety Report 4884362-7 (Version None)
Quarter: 2006Q1

REPORT INFORMATION
  Report Type: 
  Country: None (occurrence: None)
  Receive Date: 20060117
  Receipt Date: 20060117
  Transmission Date: 20060701
  Serious: Yes (Hospitalization)
  Sender: FDA-Public Use
  Company Number: None

PATIENT
  Age: 82 Year
  Sex: Female

DRUGS (10)
  1. TEQUIN [Suspect]
     Indication: INFECTION
     Dosage: 400 MG QD PO X 10 DAYS
     Route: 048
     Dates: start: 20050501, end: 20050302
  2. ROBITUSSIN [Concomitant]
  3. VICODIN [Concomitant]
  4. ELAVIL [Concomitant]
  5. NEURONTIN [Concomitant]
  6. PYRIDOXINE HCL [Concomitant]
  7. CLARITIN [Concomitant]
  8. CATAPRES [Concomitant]
  9. MAGNESIUM OXIDE [Concomitant]
  10. HYDROCHLOROTHIAZIDE [Concomitant]

REACTIONS (1)
  - HYPOGLYCAEMIA [None]
